FAERS Safety Report 14952557 (Version 3)
Quarter: 2020Q1

REPORT INFORMATION
  Report Type: Spontaneous
  Country: US (occurrence: US)
  Receive Date: 20180530
  Receipt Date: 20200214
  Transmission Date: 20200409
  Serious: No
  Sender: FDA-Public Use
  Company Number: US-PFIZER INC-2017259340

PATIENT
  Age: 47 Year
  Sex: Female

DRUGS (4)
  1. SOMAVERT [Suspect]
     Active Substance: PEGVISOMANT
     Dosage: 20 MG, DAILY
     Dates: start: 20170428
  2. SOMAVERT [Suspect]
     Active Substance: PEGVISOMANT
     Dosage: 25 MG, DAILY
  3. SOMAVERT [Suspect]
     Active Substance: PEGVISOMANT
     Dosage: 20 MG, EVERY 2-3 DAYS OR EVERY OTHER DAY
  4. SOMAVERT [Suspect]
     Active Substance: PEGVISOMANT
     Dosage: 10 MG, UNK
     Dates: start: 201702

REACTIONS (2)
  - Intentional product misuse [Unknown]
  - Skin hyperpigmentation [Unknown]
